FAERS Safety Report 5806415-9 (Version None)
Quarter: 2008Q3

REPORT INFORMATION
  Report Type: 
  Country: None (occurrence: None)
  Receive Date: 20080710
  Receipt Date: 20080628
  Transmission Date: 20090109
  Serious: Yes (Other)
  Sender: FDA-Public Use
  Company Number: US-PFIZER INC-2008022837

PATIENT
  Sex: Female
  Weight: 59 kg

DRUGS (1)
  1. CHANTIX [Suspect]
     Indication: SMOKING CESSATION THERAPY
     Route: 048
     Dates: start: 20080218, end: 20080306

REACTIONS (9)
  - ABNORMAL DREAMS [None]
  - AGITATION [None]
  - ARTHRALGIA [None]
  - DISINHIBITION [None]
  - INSOMNIA [None]
  - JOINT RANGE OF MOTION DECREASED [None]
  - NO THERAPEUTIC RESPONSE [None]
  - PAIN [None]
  - PAIN IN EXTREMITY [None]
